FAERS Safety Report 5727250-6 (Version None)
Quarter: 2008Q2

REPORT INFORMATION
  Report Type: 
  Country: None (occurrence: None)
  Receive Date: 20080505
  Receipt Date: 20080430
  Transmission Date: 20081010
  Serious: Yes (Other)
  Sender: FDA-Public Use
  Company Number: MX-BRISTOL-MYERS SQUIBB COMPANY-14154603

PATIENT
  Age: 18 Year
  Sex: Female

DRUGS (3)
  1. ABATACEPT [Suspect]
     Indication: JUVENILE ARTHRITIS
     Dosage: INTERRUPTED ON 03MAR08
     Route: 042
     Dates: start: 20040902, end: 20080303
  2. METHOTREXATE [Concomitant]
     Dates: start: 20030509
  3. FOLIC ACID [Concomitant]
     Dates: start: 20030509

REACTIONS (1)
  - FIBROADENOMA OF BREAST [None]
